FAERS Safety Report 9181568 (Version 1)
Quarter: 2013Q1

REPORT INFORMATION
  Report Type: Spontaneous
  Country: US (occurrence: None)
  Receive Date: 20130321
  Receipt Date: 20130321
  Transmission Date: 20140127
  Serious: Yes (Life-Threatening, Hospitalization, Disabling, Other)
  Sender: FDA-Public Use
  Company Number: None

PATIENT
  Age: 51 Year
  Sex: Male
  Weight: 143.79 kg

DRUGS (3)
  1. LISINOPRIL [Suspect]
     Indication: CARDIAC FAILURE CONGESTIVE
     Dosage: 10MG X1 ORAL
     Route: 048
     Dates: start: 20121212
  2. AMILORIDE [Suspect]
     Indication: BLOOD POTASSIUM DECREASED
     Dosage: 10MG  X2  ORAL
     Route: 048
     Dates: start: 20081001
  3. POTASSIUM CHLORIDE [Suspect]
     Indication: BLOOD POTASSIUM DECREASED
     Dosage: 40 MEQ X2  ORAL
     Route: 048
     Dates: start: 20041231

REACTIONS (8)
  - Hypotension [None]
  - Bradycardia [None]
  - Cardiac arrest [None]
  - Hyperkalaemia [None]
  - Renal failure [None]
  - Cardiac failure [None]
  - Respiratory failure [None]
  - Atrioventricular block second degree [None]
